FAERS Safety Report 5427371-1 (Version None)
Quarter: 2007Q3

REPORT INFORMATION
  Report Type: 
  Country: None (occurrence: None)
  Receive Date: 20070828
  Receipt Date: 20070821
  Transmission Date: 20080115
  Serious: Yes (Hospitalization)
  Sender: FDA-Public Use
  Company Number: JP-AVENTIS-200712122JP

PATIENT
  Age: 74 Year
  Sex: Female
  Weight: 40 kg

DRUGS (5)
  1. LASIX [Suspect]
     Indication: RENAL FAILURE
     Route: 048
     Dates: start: 20070101, end: 20070804
  2. ALLOPURINOL [Suspect]
     Route: 048
     Dates: start: 20070101, end: 20070804
  3. DIOVAN [Suspect]
     Indication: HYPERTENSION
     Route: 048
     Dates: start: 20070101, end: 20070804
  4. LENDORMIN [Suspect]
     Indication: INSOMNIA
     Route: 048
     Dates: start: 20070101, end: 20070803
  5. MARZULENE [Suspect]
     Indication: GASTRITIS
     Route: 048
     Dates: start: 20070101, end: 20070804

REACTIONS (1)
  - STEVENS-JOHNSON SYNDROME [None]
